FAERS Safety Report 9890456 (Version 1)
Quarter: 2014Q1

REPORT INFORMATION
  Report Type: Spontaneous
  Country: US (occurrence: None)
  Receive Date: 20140211
  Receipt Date: 20140211
  Transmission Date: 20141002
  Serious: Yes (Death)
  Sender: FDA-Public Use
  Company Number: None

PATIENT
  Sex: Male
  Weight: 3.54 kg

DRUGS (2)
  1. CLOZAPINE [Suspect]
     Indication: BIPOLAR DISORDER
     Dosage: PRE AND DURATION OF PREGNANCY
     Route: 048
  2. PRENATAL MULTIVITAMIN [Concomitant]

REACTIONS (5)
  - Caesarean section [None]
  - Apgar score low [None]
  - Arrested labour [None]
  - Neonatal respiratory depression [None]
  - Maternal drugs affecting foetus [None]
